FAERS Safety Report 6138187-5 (Version None)
Quarter: 2009Q1

REPORT INFORMATION
  Report Type: 
  Country: None (occurrence: None)
  Receive Date: 20090327
  Receipt Date: 20090318
  Transmission Date: 20090719
  Serious: Yes (Other)
  Sender: FDA-Public Use
  Company Number: APP200900144

PATIENT
  Sex: Male

DRUGS (1)
  1. DIPRIVAN [Suspect]
     Indication: SEDATION
     Dosage: INTRAVENOUS DRIP
     Route: 041
     Dates: end: 20090318

REACTIONS (1)
  - DELAYED RECOVERY FROM ANAESTHESIA [None]
